FAERS Safety Report 4643152-0 (Version None)
Quarter: 2005Q2

REPORT INFORMATION
  Report Type: 
  Country: None (occurrence: None)
  Receive Date: 20050421
  Receipt Date: 20050413
  Transmission Date: 20051028
  Serious: Yes (Other)
  Sender: FDA-Public Use
  Company Number: 200510186BCA

PATIENT
  Age: 86 Year
  Sex: Female

DRUGS (3)
  1. ALKA SELTZER [Suspect]
     Dosage: 325 MG, PRN, ORAL
     Route: 048
  2. PEPTO-BISMOL (BISMUTH SUBSALICYLATE) [Suspect]
  3. TUMS [Concomitant]

REACTIONS (3)
  - GASTROINTESTINAL HAEMORRHAGE [None]
  - HAEMATEMESIS [None]
  - LOSS OF CONSCIOUSNESS [None]
